FAERS Safety Report 8455677-0 (Version None)
Quarter: 2012Q2

REPORT INFORMATION
  Report Type: 
  Country: None (occurrence: None)
  Receive Date: 20120621
  Receipt Date: 20120612
  Transmission Date: 20120825
  Serious: Yes (Other)
  Sender: FDA-Public Use
  Company Number: LT-JNJFOC-20110403453

PATIENT
  Age: 49 Year
  Sex: Female

DRUGS (12)
  1. ALFA  INTERFERON [Suspect]
     Indication: METASTASES TO LIVER
     Dosage: 4 MU/M2 DAY 1-3 WITH A 40-50 DAYS INTERVAL
     Route: 013
  2. DOXORUBICIN HCL [Suspect]
     Indication: METASTASES TO LIVER
     Dosage: DAY 1
     Route: 013
  3. FLUOROURACIL [Suspect]
     Indication: RENAL MASS
     Dosage: DAY 1-3
     Route: 013
  4. ALFA  INTERFERON [Suspect]
     Indication: RENAL MASS
     Dosage: 4 MU/M2 DAY 1-3 WITH A 40-50 DAYS INTERVAL
     Route: 013
  5. FLUOROURACIL [Suspect]
     Indication: IRITIC MELANOMA
     Dosage: DAY 1-3
     Route: 013
  6. FLUOROURACIL [Suspect]
     Indication: METASTASES TO LIVER
     Dosage: DAY 1-3
     Route: 013
  7. ALFA  INTERFERON [Suspect]
     Indication: IRITIC MELANOMA
     Dosage: 4 MU/M2 DAY 1-3 WITH A 40-50 DAYS INTERVAL
     Route: 013
  8. DOXORUBICIN HCL [Suspect]
     Indication: IRITIC MELANOMA
     Dosage: DAY 1
     Route: 013
  9. CISPLATIN [Suspect]
     Indication: IRITIC MELANOMA
     Dosage: DAY 1
     Route: 013
  10. CISPLATIN [Suspect]
     Indication: RENAL MASS
     Dosage: DAY 1
     Route: 013
  11. CISPLATIN [Suspect]
     Indication: METASTASES TO LIVER
     Dosage: DAY 1
     Route: 013
  12. DOXORUBICIN HCL [Suspect]
     Indication: RENAL MASS
     Dosage: DAY 1
     Route: 013

REACTIONS (5)
  - THROMBOCYTOPENIA [None]
  - OFF LABEL USE [None]
  - DRUG EFFECT DECREASED [None]
  - INCORRECT ROUTE OF DRUG ADMINISTRATION [None]
  - TRANSAMINASES INCREASED [None]
